FAERS Safety Report 6722317-8 (Version None)
Quarter: 2010Q2

REPORT INFORMATION
  Report Type: 
  Country: None (occurrence: None)
  Receive Date: 20100512
  Receipt Date: 20100506
  Transmission Date: 20101027
  Serious: Yes (Life-Threatening, Hospitalization)
  Sender: FDA-Public Use
  Company Number: ES-CELGENEUS-144-C5013-10030133

PATIENT
  Sex: Female
  Weight: 55 kg

DRUGS (5)
  1. CC-5013 [Suspect]
     Indication: MULTIPLE MYELOMA
     Route: 048
     Dates: start: 20100201, end: 20100221
  2. CC-5013 [Suspect]
     Route: 048
     Dates: start: 20090907
  3. DEXAMETHASONE [Suspect]
     Indication: MULTIPLE MYELOMA
     Route: 065
     Dates: start: 20100201, end: 20100228
  4. DEXAMETHASONE [Suspect]
     Route: 065
     Dates: start: 20090907
  5. SEGURIL [Concomitant]
     Route: 065

REACTIONS (6)
  - BRONCHIECTASIS [None]
  - FATIGUE [None]
  - HYPOKALAEMIA [None]
  - INTERSTITIAL LUNG DISEASE [None]
  - PULMONARY HYPERTENSION [None]
  - WHIPPLE'S DISEASE [None]
